FAERS Safety Report 24224336 (Version 1)
Quarter: 2024Q3

REPORT INFORMATION
  Report Type: Spontaneous
  Country: UA (occurrence: UA)
  Receive Date: 20240819
  Receipt Date: 20240819
  Transmission Date: 20241017
  Serious: Yes (Other)
  Sender: MYLAN
  Company Number: UA-MYLANLABS-2024M1076768

PATIENT
  Age: 42 Year
  Sex: Female

DRUGS (4)
  1. PRETOMANID [Suspect]
     Active Substance: PRETOMANID
     Indication: Pulmonary tuberculosis
     Dosage: 0.2 GRAM, QD
     Route: 048
     Dates: start: 20240525
  2. BEDAQUILINE [Suspect]
     Active Substance: BEDAQUILINE
     Indication: Pulmonary tuberculosis
     Dosage: 0.4 GRAM, Q6H
     Route: 048
     Dates: start: 20240525
  3. LINEZOLID [Suspect]
     Active Substance: LINEZOLID
     Indication: Pulmonary tuberculosis
     Dosage: 0.6 GRAM, QD
     Route: 048
     Dates: start: 20240525
  4. MOXIFLOXACIN [Suspect]
     Active Substance: MOXIFLOXACIN
     Indication: Pulmonary tuberculosis
     Dosage: 0.4 GRAM, QD
     Route: 048
     Dates: start: 20240525

REACTIONS (1)
  - Nephropathy toxic [Unknown]

NARRATIVE: CASE EVENT DATE: 20240728
